FAERS Safety Report 10580594 (Version 3)
Quarter: 2014Q4

REPORT INFORMATION
  Report Type: Spontaneous
  Country: PL (occurrence: PL)
  Receive Date: 20141113
  Receipt Date: 20141127
  Transmission Date: 20150529
  Serious: Yes (Other)
  Sender: FDA-Public Use
  Company Number: PL-BEH-2014042761

PATIENT
  Age: 33 Year
  Sex: Female

DRUGS (2)
  1. KIOVIG [Suspect]
     Active Substance: HUMAN IMMUNOGLOBULIN G
     Indication: MULTIFOCAL MOTOR NEUROPATHY
     Dosage: KIOVIG SINCE 2012; 1 G/KG B.W. ABOUT EVERY 12 WEEKS / CYCLIC TREATMENT EVERY 3-4 MONTHS
     Route: 042
  2. IVIG [INTRAVENOUS IMMUNOGLOBULIN] [Suspect]
     Active Substance: HUMAN IMMUNOGLOBULIN G
     Indication: MULTIFOCAL MOTOR NEUROPATHY
     Dosage: DOSE AND INTERVALS DEPENDED ON SYMPTOM SEVERITY
     Route: 042

REACTIONS (3)
  - Drug effect decreased [Not Recovered/Not Resolved]
  - Headache [Unknown]
  - Exposure during pregnancy [Unknown]
